FAERS Safety Report 4388538-7 (Version None)
Quarter: 2004Q2

REPORT INFORMATION
  Report Type: 
  Country: None (occurrence: None)
  Receive Date: 20040625
  Receipt Date: 20040611
  Transmission Date: 20050107
  Serious: Yes (Hospitalization)
  Sender: FDA-Public Use
  Company Number: JP-JNJFOC-20040303210

PATIENT
  Age: 53 Year
  Sex: Female

DRUGS (4)
  1. LEUSTATIN [Suspect]
     Indication: HAIRY CELL LEUKAEMIA
     Dosage: 4.5 MG, 1 IN 1 DAY
     Dates: start: 20030811, end: 20030817
  2. ALLOPURINOL [Concomitant]
  3. SODIUM RABEPRAZOLE (RABEPRAZOLE SODIUM) [Concomitant]
  4. FLUCONAZOLE [Concomitant]

REACTIONS (6)
  - ALANINE AMINOTRANSFERASE INCREASED [None]
  - ASPARTATE AMINOTRANSFERASE INCREASED [None]
  - BLOOD ALKALINE PHOSPHATASE INCREASED [None]
  - GAMMA-GLUTAMYLTRANSFERASE INCREASED [None]
  - LEUKOPENIA [None]
  - NEUTROPENIA [None]
